APPROVED DRUG PRODUCT: TOPIRAMATE
Active Ingredient: TOPIRAMATE
Strength: 50MG
Dosage Form/Route: CAPSULE;ORAL
Application: A216683 | Product #003 | TE Code: AB
Applicant: RUBICON RESEARCH LTD
Approved: May 27, 2025 | RLD: No | RS: No | Type: RX

EXCLUSIVITY:
Code: CGT | Date: Feb 1, 2026